FAERS Safety Report 14918867 (Version 1)
Quarter: 2018Q2

REPORT INFORMATION
  Report Type: Spontaneous
  Country: FR (occurrence: FR)
  Receive Date: 20180521
  Receipt Date: 20180521
  Transmission Date: 20180711
  Serious: Yes (Other)
  Sender: FDA-Public Use
  Company Number: FR-009507513-1805FRA007701

PATIENT
  Age: 83 Year
  Sex: Male
  Weight: 100 kg

DRUGS (14)
  1. INEXIUM (ESOMEPRAZOLE MAGNESIUM) [Suspect]
     Active Substance: ESOMEPRAZOLE MAGNESIUM
     Indication: GASTRIC PH DECREASED
     Dosage: 40 MG, QD(STARTED BEFORE 2009)
     Route: 048
  2. LYRICA [Suspect]
     Active Substance: PREGABALIN
     Indication: NEURALGIA
     Dosage: 50 MG, QD
     Route: 048
     Dates: start: 201005
  3. CORTANCYL [Suspect]
     Active Substance: PREDNISONE
     Indication: OSTEOARTHRITIS
     Dosage: 60 MG, QD
     Route: 048
     Dates: start: 20180115, end: 2018
  4. MEBEVERINE [Suspect]
     Active Substance: MEBEVERINE
     Indication: ABDOMINAL PAIN
     Dosage: 600 MG, QD
     Route: 048
     Dates: start: 201311
  5. PREVISCAN (FLUINDIONE) [Suspect]
     Active Substance: FLUINDIONE
     Indication: THROMBOSIS
     Dosage: 20 MG, QD
     Route: 048
     Dates: start: 20111126
  6. PREVISCAN (FLUINDIONE) [Suspect]
     Active Substance: FLUINDIONE
     Indication: ARRHYTHMIA
     Dosage: UNK
  7. DISCOTRINE [Suspect]
     Active Substance: NITROGLYCERIN
     Indication: CARDIAC FAILURE
     Dosage: 5 MG, QD (BEFORE 2009)
     Route: 062
  8. INEGY [Suspect]
     Active Substance: EZETIMIBE\SIMVASTATIN
     Indication: HYPERCHOLESTEROLAEMIA
     Dosage: 50 MG, QD (10 + 40 MG)
     Route: 048
  9. NOVOMIX 30 [Suspect]
     Active Substance: INSULIN ASPART
     Indication: TYPE 2 DIABETES MELLITUS
     Dosage: 60 IU, QD
     Route: 065
     Dates: start: 20170628
  10. TAREG [Suspect]
     Active Substance: VALSARTAN
     Indication: HYPERTENSION
     Dosage: 80 MG, QD (BEFORE 2009)
     Route: 048
  11. SOTALEX [Suspect]
     Active Substance: SOTALOL
     Indication: ARRHYTHMIA
     Dosage: 160 MG, QD (BEFORE 2009)
     Route: 048
  12. IMOVANE [Suspect]
     Active Substance: ZOPICLONE
     Indication: INSOMNIA
     Dosage: 7.5 MG, QD
     Route: 048
     Dates: start: 20130312, end: 20180402
  13. FUROSEMIDE. [Suspect]
     Active Substance: FUROSEMIDE
     Indication: TENSION
     Dosage: 40 MG, QD
     Route: 048
     Dates: start: 20111106
  14. DOLIPRANE [Suspect]
     Active Substance: ACETAMINOPHEN
     Indication: OSTEOARTHRITIS
     Dosage: 3 G, QD
     Route: 048
     Dates: start: 2011

REACTIONS (3)
  - Hyperglycaemia [Recovering/Resolving]
  - Device malfunction [Unknown]
  - Wrong technique in device usage process [Unknown]

NARRATIVE: CASE EVENT DATE: 201803
